FAERS Safety Report 7937486-1 (Version None)
Quarter: 2011Q4

REPORT INFORMATION
  Report Type: 
  Country: None (occurrence: None)
  Receive Date: 20111123
  Receipt Date: 20111115
  Transmission Date: 20120403
  Serious: Yes (Other)
  Sender: FDA-Public Use
  Company Number: US-PERRIGO-11US010088

PATIENT
  Sex: Male
  Weight: 26.757 kg

DRUGS (2)
  1. CHILDREN'S IBUPROFEN [Suspect]
     Dosage: 5 ML, SINGLE
     Route: 048
     Dates: start: 20111111, end: 20111111
  2. CHILDREN'S IBUPROFEN [Suspect]
     Indication: PYREXIA
     Dosage: 5 ML EVERY 6 HOURS X2 DOSES
     Route: 048
     Dates: start: 20111108, end: 20111108

REACTIONS (3)
  - VISUAL IMPAIRMENT [None]
  - SENSORY DISTURBANCE [None]
  - HALLUCINATION [None]
